FAERS Safety Report 19675858 (Version 1)
Quarter: 2021Q3

REPORT INFORMATION
  Report Type: Spontaneous
  Country: JP (occurrence: JP)
  Receive Date: 20210809
  Receipt Date: 20210809
  Transmission Date: 20211014
  Serious: Yes (Other)
  Sender: FDA-Public Use
  Company Number: JP-PBT-000533

PATIENT
  Age: 14 Year

DRUGS (10)
  1. ETOPOSIDE. [Suspect]
     Active Substance: ETOPOSIDE
     Indication: EWING^S SARCOMA
     Route: 065
  2. IFOSFAMIDE. [Suspect]
     Active Substance: IFOSFAMIDE
     Indication: EWING^S SARCOMA
     Route: 065
  3. DACTINOMYCIN [Suspect]
     Active Substance: DACTINOMYCIN
     Indication: EWING^S SARCOMA
     Route: 065
  4. CYCLOPHOSPHAMIDE. [Suspect]
     Active Substance: CYCLOPHOSPHAMIDE
     Indication: EWING^S SARCOMA
     Route: 065
  5. DOXORUBICIN [Suspect]
     Active Substance: DOXORUBICIN
     Indication: EWING^S SARCOMA
     Route: 065
  6. METHOTREXATE. [Suspect]
     Active Substance: METHOTREXATE
     Indication: PROPHYLAXIS AGAINST GRAFT VERSUS HOST DISEASE
     Dosage: ON DAYS +3 AND +6 AFTER TRANSPLANTATION
     Route: 042
  7. VINCRISTINE [Suspect]
     Active Substance: VINCRISTINE
     Indication: EWING^S SARCOMA
     Route: 065
  8. PREDNISOLONE. [Suspect]
     Active Substance: PREDNISOLONE
     Indication: PROPHYLAXIS AGAINST GRAFT VERSUS HOST DISEASE
     Route: 065
  9. TACROLIMUS. [Suspect]
     Active Substance: TACROLIMUS
     Indication: PROPHYLAXIS AGAINST GRAFT VERSUS HOST DISEASE
     Route: 065
  10. METHOTREXATE. [Suspect]
     Active Substance: METHOTREXATE
     Indication: PROPHYLAXIS AGAINST GRAFT VERSUS HOST DISEASE
     Dosage: ON DAY +1
     Route: 042

REACTIONS (10)
  - Ewing^s sarcoma [Recovered/Resolved]
  - Bladder dysfunction [Unknown]
  - Drug ineffective [Unknown]
  - Product use in unapproved indication [Unknown]
  - Ovarian disorder [Unknown]
  - Neoplasm recurrence [Recovered/Resolved]
  - Viral haemorrhagic cystitis [Unknown]
  - Cytomegalovirus infection [Unknown]
  - Decreased appetite [Unknown]
  - Therapy partial responder [Unknown]
